FAERS Safety Report 19289011 (Version 5)
Quarter: 2021Q3

REPORT INFORMATION
  Report Type: Report from Study
  Country: CA (occurrence: CA)
  Receive Date: 20210521
  Receipt Date: 20210916
  Transmission Date: 20211014
  Serious: Yes (Hospitalization, Other)
  Sender: FDA-Public Use
  Company Number: CA-BIOGEN-2021BI01004720

PATIENT
  Age: 58 Year
  Sex: Female

DRUGS (5)
  1. TYSABRI [Suspect]
     Active Substance: NATALIZUMAB
     Route: 042
  2. TYSABRI [Suspect]
     Active Substance: NATALIZUMAB
     Route: 042
     Dates: start: 20210420
  3. TYSABRI [Suspect]
     Active Substance: NATALIZUMAB
     Indication: MULTIPLE SCLEROSIS
     Dosage: INFUSED FOR OVER 1 HOUR
     Route: 042
     Dates: start: 20210420
  4. TYSABRI [Suspect]
     Active Substance: NATALIZUMAB
     Route: 042
     Dates: start: 20210420
  5. ASTRAZENECA COVID?19 VACCINE [Suspect]
     Active Substance: AZD-1222
     Indication: COVID-19 PROPHYLAXIS
     Route: 065

REACTIONS (36)
  - Oropharyngeal pain [Unknown]
  - Visual impairment [Recovered/Resolved]
  - Muscle spasms [Unknown]
  - Diarrhoea [Unknown]
  - Sleep apnoea syndrome [Unknown]
  - Swollen tongue [Unknown]
  - Abdominal pain [Unknown]
  - Mass [Unknown]
  - Haemorrhage [Unknown]
  - Pharyngeal hypoaesthesia [Unknown]
  - Contusion [Unknown]
  - Bone contusion [Unknown]
  - Haematochezia [Unknown]
  - Vision blurred [Recovered/Resolved]
  - Chills [Recovered/Resolved]
  - Spinal column injury [Unknown]
  - Irritable bowel syndrome [Unknown]
  - Urinary tract infection [Unknown]
  - Muscle twitching [Unknown]
  - Gastrointestinal disorder [Unknown]
  - Fall [Recovered/Resolved]
  - Neck mass [Unknown]
  - Mobility decreased [Unknown]
  - Anxiety [Unknown]
  - Eye pain [Unknown]
  - Pain [Unknown]
  - Fatigue [Unknown]
  - Choking [Not Recovered/Not Resolved]
  - Syncope [Unknown]
  - Speech disorder [Unknown]
  - Tongue movement disturbance [Not Recovered/Not Resolved]
  - Abdominal rigidity [Unknown]
  - Burning sensation [Unknown]
  - Gait disturbance [Unknown]
  - Head injury [Recovered/Resolved]
  - Tremor [Unknown]

NARRATIVE: CASE EVENT DATE: 202104
